FAERS Safety Report 7073300-7 (Version None)
Quarter: 2010Q4

REPORT INFORMATION
  Report Type: 
  Country: None (occurrence: None)
  Receive Date: 20101029
  Receipt Date: 20100525
  Transmission Date: 20110411
  Serious: No
  Sender: FDA-Public Use
  Company Number: A0861234A

PATIENT
  Age: 82 Year
  Sex: Male

DRUGS (7)
  1. ADVAIR [Suspect]
     Indication: CHRONIC OBSTRUCTIVE PULMONARY DISEASE
     Dosage: 1PUFF TWICE PER DAY
     Route: 055
     Dates: start: 20100428
  2. PREDNISONE [Suspect]
     Route: 048
  3. AVODART [Concomitant]
  4. HYDROCHLOROTHIAZIDE [Concomitant]
  5. FISH OIL [Concomitant]
  6. ASPIRIN [Concomitant]
  7. NASAL SALINE IRRIGATION [Concomitant]

REACTIONS (8)
  - CANDIDIASIS [None]
  - COUGH [None]
  - DRY MOUTH [None]
  - DYSPEPSIA [None]
  - DYSPNOEA EXERTIONAL [None]
  - INCREASED UPPER AIRWAY SECRETION [None]
  - ORAL PAIN [None]
  - WHEEZING [None]
